FAERS Safety Report 15421029 (Version 3)
Quarter: 2019Q1

REPORT INFORMATION
  Report Type: Report from Study
  Country: US (occurrence: US)
  Receive Date: 20180924
  Receipt Date: 20190326
  Transmission Date: 20190417
  Serious: No
  Sender: FDA-Public Use
  Company Number: PHEH2018US039694

PATIENT
  Sex: Female

DRUGS (1)
  1. COSENTYX [Suspect]
     Active Substance: SECUKINUMAB
     Indication: PSORIATIC ARTHROPATHY
     Route: 058

REACTIONS (14)
  - Upper respiratory tract infection [Unknown]
  - Drug ineffective [Unknown]
  - Bronchitis [Unknown]
  - Skin disorder [Unknown]
  - Urticaria [Unknown]
  - Hypersensitivity [Unknown]
  - Dry skin [Unknown]
  - Pain [Unknown]
  - Eczema [Unknown]
  - Scab [Unknown]
  - Abscess [Unknown]
  - Influenza [Unknown]
  - Diarrhoea [Unknown]
  - Laryngitis [Unknown]
